FAERS Safety Report 9394309 (Version 1)
Quarter: 2013Q3

REPORT INFORMATION
  Report Type: Report from Study
  Country: VE (occurrence: VE)
  Receive Date: 20130711
  Receipt Date: 20130711
  Transmission Date: 20140515
  Serious: Yes (Other)
  Sender: FDA-Public Use
  Company Number: VE-ROCHE-1246801

PATIENT
  Sex: Male
  Weight: 79 kg

DRUGS (1)
  1. XELODA [Suspect]
     Indication: COLON CANCER
     Route: 048
     Dates: start: 20130505

REACTIONS (2)
  - Visual acuity reduced [Unknown]
  - Hiccups [Recovered/Resolved]
